FAERS Safety Report 15114970 (Version 2)
Quarter: 2019Q4

REPORT INFORMATION
  Report Type: Report from Study
  Country: JP (occurrence: JP)
  Receive Date: 20180706
  Receipt Date: 20191029
  Transmission Date: 20200122
  Serious: Yes (Disabling)
  Sender: FDA-Public Use
  Company Number: JP-CLINIGEN GROUP PLC/ CLINIGEN HEALTHCARE LTD-JP-CLGN-18-00267

PATIENT
  Age: 62 Year
  Sex: Female
  Weight: 72 kg

DRUGS (14)
  1. DEXART [Concomitant]
     Active Substance: DEXAMETHASONE SODIUM PHOSPHATE
     Indication: INFUSION SITE EXTRAVASATION
     Dates: start: 20180116, end: 20180116
  2. XYLOCAINE [Concomitant]
     Active Substance: LIDOCAINE HYDROCHLORIDE
     Indication: INFUSION SITE EXTRAVASATION
     Dates: start: 20180116, end: 20180116
  3. PROSTANDIN [Concomitant]
     Indication: INFUSION SITE EXTRAVASATION
     Route: 003
     Dates: start: 20180205, end: 20180213
  4. SAVENE [Suspect]
     Active Substance: DEXRAZOXANE
     Indication: INFUSION SITE EXTRAVASATION
     Route: 041
     Dates: start: 20180116, end: 20180116
  5. SAVENE [Suspect]
     Active Substance: DEXRAZOXANE
     Route: 041
     Dates: start: 20180117, end: 20180117
  6. RINGERS SOLUTION [Concomitant]
     Active Substance: CALCIUM CHLORIDE\POTASSIUM CHLORIDE\SODIUM CHLORIDE
     Indication: MEDICATION DILUTION
     Route: 041
     Dates: start: 20180116, end: 20180118
  7. GEBEN [Concomitant]
     Active Substance: SILVER SULFADIAZINE
     Indication: INFUSION SITE EXTRAVASATION
     Route: 003
     Dates: start: 20180124, end: 20180205
  8. SAVENE [Suspect]
     Active Substance: DEXRAZOXANE
     Route: 041
     Dates: start: 20180118, end: 20180118
  9. ENDOXAN [Concomitant]
     Active Substance: CYCLOPHOSPHAMIDE
     Indication: BREAST CANCER
     Route: 042
     Dates: start: 20180116, end: 20180116
  10. NERISONA [Concomitant]
     Active Substance: DIFLUCORTOLONE VALERATE
     Indication: INFUSION SITE EXTRAVASATION
     Route: 003
     Dates: start: 20180116, end: 20180123
  11. DERMOVATE [Concomitant]
     Active Substance: CLOBETASOL
     Indication: INFUSION SITE EXTRAVASATION
     Route: 003
     Dates: start: 20180116
  12. AMOXICILLIN HYDRATE [Concomitant]
     Active Substance: AMOXICILLIN
     Indication: INFUSION SITE EXTRAVASATION
     Route: 048
     Dates: start: 20180124, end: 20180130
  13. EPIRUBICIN HYDROCHLORIDE. [Concomitant]
     Active Substance: EPIRUBICIN HYDROCHLORIDE
     Indication: BREAST CANCER
     Route: 042
     Dates: start: 20180116, end: 20180116
  14. TRAMADOL HYDROCHLORIDE. [Concomitant]
     Active Substance: TRAMADOL HYDROCHLORIDE
     Indication: INFUSION SITE EXTRAVASATION
     Route: 048
     Dates: start: 20180124, end: 20180223

REACTIONS (5)
  - Surgery [Unknown]
  - Muscular weakness [Recovering/Resolving]
  - Skin irritation [Not Recovered/Not Resolved]
  - Underdose [Unknown]
  - Injection site pain [Not Recovered/Not Resolved]

NARRATIVE: CASE EVENT DATE: 20180117
